FAERS Safety Report 5682458-3 (Version None)
Quarter: 2008Q1

REPORT INFORMATION
  Report Type: 
  Country: None (occurrence: None)
  Receive Date: 20080327
  Receipt Date: 20080325
  Transmission Date: 20080703
  Serious: Yes (Hospitalization)
  Sender: FDA-Public Use
  Company Number: US-BRISTOL-MYERS SQUIBB COMPANY-14125561

PATIENT
  Age: 89 Year
  Sex: Female
  Weight: 73 kg

DRUGS (8)
  1. COUMADIN [Suspect]
     Dosage: 1 DOSAGEFORM = 2.5 MG DAILY ALTERNATING WITH 2.5 MG, 1/2 TABS DAILY
     Dates: start: 20070101
  2. WARFARIN SODIUM [Suspect]
  3. DILTIAZEM HCL [Concomitant]
     Dates: start: 20070101
  4. FENOFIBRATE [Concomitant]
  5. GLYBURIDE AND METFORMIN HCL [Concomitant]
     Dosage: 1 DOSAGEFORM = 2.5MG/500MG
  6. MICARDIS [Concomitant]
     Dosage: 1 DOSAGEFORM = 40MG/12.5MG
  7. LIPITOR [Concomitant]
  8. GINKGO BILOBA [Concomitant]

REACTIONS (6)
  - BLOOD URINE PRESENT [None]
  - CONFUSIONAL STATE [None]
  - FALL [None]
  - HAEMATOCHEZIA [None]
  - MASS [None]
  - PROTHROMBIN TIME PROLONGED [None]
